FAERS Safety Report 4334016-0 (Version None)
Quarter: 2004Q1

REPORT INFORMATION
  Report Type: 
  Country: None (occurrence: None)
  Receive Date: 20040329
  Receipt Date: 20040113
  Transmission Date: 20041129
  Serious: No
  Sender: FDA-Public Use
  Company Number: 04P-163-0247052-00

PATIENT
  Age: 44 Year
  Sex: Female
  Weight: 68.0396 kg

DRUGS (4)
  1. HUMIRA [Suspect]
     Indication: RHEUMATOID ARTHRITIS
     Dosage: 40 MG, 1 IN 2 WK, SUBCUTANEOUS
     Route: 058
     Dates: start: 20031212
  2. CELECOXIB [Concomitant]
  3. MOMETASONE FUROATE [Concomitant]
  4. CETIRIZINE HCL [Concomitant]

REACTIONS (3)
  - HEADACHE [None]
  - SINUS CONGESTION [None]
  - SINUSITIS [None]
